FAERS Safety Report 6197860-3 (Version None)
Quarter: 2009Q2

REPORT INFORMATION
  Report Type: 
  Country: None (occurrence: None)
  Receive Date: 20090521
  Receipt Date: 20090518
  Transmission Date: 20091009
  Serious: Yes (Disabling)
  Sender: FDA-Public Use
  Company Number: B0574597A

PATIENT
  Age: 62 Year
  Sex: Female
  Weight: 91 kg

DRUGS (4)
  1. ORLISTAT [Suspect]
     Indication: OBESITY
     Dosage: 240MG PER DAY
     Route: 048
     Dates: start: 20070103, end: 20080903
  2. AMLODIPINE [Concomitant]
     Indication: HYPERTENSION
     Dosage: 5MG PER DAY
     Route: 048
     Dates: start: 20070307
  3. BENDROFLUMETHIAZIDE [Concomitant]
     Indication: HYPERTENSION
     Dosage: 2.5MG PER DAY
     Route: 048
     Dates: start: 20061220
  4. RAMIPRIL [Concomitant]
     Indication: HYPERTENSION
     Dosage: 1.25G PER DAY
     Route: 048
     Dates: start: 20070606, end: 20080730

REACTIONS (2)
  - ABDOMINAL PAIN [None]
  - CHOLELITHIASIS [None]
